FAERS Safety Report 7245936-1 (Version None)
Quarter: 2011Q1

REPORT INFORMATION
  Report Type: 
  Country: None (occurrence: None)
  Receive Date: 20110126
  Receipt Date: 20100916
  Transmission Date: 20110831
  Serious: Yes (Hospitalization, Other)
  Sender: FDA-Public Use
  Company Number: US-BAYER-201012903NA

PATIENT
  Sex: Female
  Weight: 68 kg

DRUGS (28)
  1. YAZ [Suspect]
     Indication: PREMENSTRUAL SYNDROME
     Dosage: UNK
     Route: 048
     Dates: start: 20070601, end: 20091101
  2. OXYCODONE HCL AND ACETAMINOPHEN [Concomitant]
     Dates: start: 20000101
  3. PHENAZOPYRIDINE HCL TAB [Concomitant]
     Dates: start: 20000101
  4. SUPHEDRINE [PSEUDOEPHEDRINE HYDROCHLORIDE] [Concomitant]
     Dates: start: 20000101
  5. PROMETHAZINE [Concomitant]
     Dates: start: 20000101
  6. AMOXICILLIN [Concomitant]
     Indication: EAR INFECTION
  7. IBUPROFEN [Concomitant]
  8. AMOXICILLIN [Concomitant]
     Indication: POSTOPERATIVE CARE
  9. CLINDAMYCIN [Concomitant]
     Dates: start: 20000101
  10. ASCORBIC ACID [Concomitant]
     Dates: start: 20090101, end: 20100101
  11. VICODIN [Concomitant]
     Indication: PROCEDURAL PAIN
     Dates: start: 20080101
  12. DARVOCET [Concomitant]
     Indication: PROCEDURAL PAIN
     Dates: start: 20070101
  13. PEDOX-S (UNKNOWN DRUG) [Concomitant]
     Dates: start: 20000101
  14. CITALOPRAM [Concomitant]
     Dates: start: 20000101
  15. COUGH AND COLD PREPARATIONS [Concomitant]
     Dates: start: 20000101
  16. OTOLOGICALS [Concomitant]
     Dates: start: 20000101
  17. CIPRODEX [CIPROFLOXACIN,DEXAMETHASONE] [Concomitant]
     Dates: start: 20000101
  18. EXCEDRIN (MIGRAINE) [Concomitant]
  19. YASMIN [Suspect]
     Indication: PREMENSTRUAL SYNDROME
     Dosage: UNK
     Route: 048
     Dates: start: 20070601, end: 20091101
  20. NAPROXEN [Concomitant]
     Dates: start: 20000101
  21. PREDNISONE [Concomitant]
     Dates: start: 20000101
  22. GRIS-PEG [Concomitant]
     Dates: start: 20000101
  23. AMOXICILLIN [Concomitant]
     Indication: PHARYNGITIS STREPTOCOCCAL
     Dates: start: 20000101
  24. LORTAB [Concomitant]
     Indication: ARTHRALGIA
     Dates: start: 20080101
  25. REPLIVA (UNKNOWN DRUG) [Concomitant]
     Dates: start: 20000101
  26. AMOXICILLIN AND CLAVULANATE POTASSIUM [Concomitant]
     Dates: start: 20000101
  27. PERCOCET [Concomitant]
     Indication: ARTHRALGIA
     Dates: start: 20080101
  28. IRON TABLETS [Concomitant]
     Indication: ANAEMIA
     Route: 048

REACTIONS (8)
  - ABDOMINAL PAIN UPPER [None]
  - CHOLESTEROSIS [None]
  - PANCREATITIS [None]
  - CHOLELITHIASIS [None]
  - CHOLECYSTITIS CHRONIC [None]
  - NAUSEA [None]
  - BILIARY DILATATION [None]
  - BILIARY COLIC [None]
